FAERS Safety Report 16774954 (Version 1)
Quarter: 2019Q3

REPORT INFORMATION
  Report Type: Report from Study
  Country: IT (occurrence: IT)
  Receive Date: 20190905
  Receipt Date: 20190905
  Transmission Date: 20191005
  Serious: Yes (Hospitalization)
  Sender: FDA-Public Use
  Company Number: IT-TEVA-2019-IT-1101346

PATIENT
  Age: 83 Year
  Sex: Female

DRUGS (8)
  1. LANSOX 30 MG CAPSULE RIGIDE [Concomitant]
  2. ATENOLOL. [Concomitant]
     Active Substance: ATENOLOL
  3. TICLOPIDINE [Suspect]
     Active Substance: TICLOPIDINE
     Indication: ENDARTERECTOMY
     Dosage: 250 MG
     Route: 048
     Dates: start: 20190101, end: 20190203
  4. KADIUR 50 MG - 5 MG COMPRESSES WITH FILM [Concomitant]
  5. LERCANIDIPINE [Concomitant]
     Active Substance: LERCANIDIPINE
  6. TIARTAN 600 MG/12.5 MG, TABLET COATED WITH FILM [Concomitant]
  7. CATAPRESAN TTS-1 2.5 MG CEROTTI TRANSDERMICI [Concomitant]
  8. VYTORIN 10MG/20 MG COMPRESSE [Concomitant]

REACTIONS (3)
  - Aphasia [Recovered/Resolved with Sequelae]
  - Cerebral ischaemia [Recovered/Resolved with Sequelae]
  - Hemiparesis [Recovered/Resolved with Sequelae]

NARRATIVE: CASE EVENT DATE: 20190203
